FAERS Safety Report 6810130-2 (Version None)
Quarter: 2010Q2

REPORT INFORMATION
  Report Type: 
  Country: None (occurrence: None)
  Receive Date: 20100630
  Receipt Date: 20100623
  Transmission Date: 20101027
  Serious: Yes (Death, Hospitalization)
  Sender: FDA-Public Use
  Company Number: GB-ROCHE-711443

PATIENT
  Age: 73 Year
  Sex: Female
  Weight: 50 kg

DRUGS (1)
  1. CAPECITABINE [Suspect]
     Indication: RECTAL CANCER
     Dosage: DRUG WITHDRAWN
     Route: 048
     Dates: start: 20100419, end: 20100421

REACTIONS (2)
  - DIABETIC KETOACIDOSIS [None]
  - NEUTROPENIC SEPSIS [None]
